FAERS Safety Report 11588711 (Version 6)
Quarter: 2016Q1

REPORT INFORMATION
  Report Type: Report from Study
  Country: CZ (occurrence: CZ)
  Receive Date: 20151002
  Receipt Date: 20160313
  Transmission Date: 20160525
  Serious: Yes (Hospitalization)
  Sender: FDA-Public Use
  Company Number: CZ-BRISTOL-MYERS SQUIBB COMPANY-BMS-2015-064027

PATIENT
  Age: 61 Year
  Sex: Female
  Weight: 63 kg

DRUGS (6)
  1. IMODIUM [Concomitant]
     Active Substance: LOPERAMIDE HYDROCHLORIDE
     Indication: PRODUCT USED FOR UNKNOWN INDICATION
     Dosage: UNK
     Route: 065
     Dates: start: 20150807
  2. BLINDED NIVOLUMAB [Suspect]
     Active Substance: NIVOLUMAB
     Indication: MALIGNANT MELANOMA
     Dosage: 100 ML, QD
     Route: 042
     Dates: start: 20150918
  3. PLASMALYTE [Concomitant]
     Active Substance: ELECTROLYTES NOS
     Indication: PRODUCT USED FOR UNKNOWN INDICATION
     Route: 065
  4. BLINDED IPILIMUMAB [Suspect]
     Active Substance: IPILIMUMAB
     Indication: MALIGNANT MELANOMA
     Dosage: 100 ML, QD
     Route: 042
     Dates: start: 20150918
  5. BLINDED PLACEBO [Suspect]
     Active Substance: INVESTIGATIONAL PRODUCT
     Indication: MALIGNANT MELANOMA
     Dosage: 100 ML, QD
     Route: 042
     Dates: start: 20150918
  6. SOLU-MEDROL [Concomitant]
     Active Substance: METHYLPREDNISOLONE SODIUM SUCCINATE
     Indication: PRODUCT USED FOR UNKNOWN INDICATION
     Dosage: 1 MG/KG, UNK
     Route: 065

REACTIONS (1)
  - Dehydration [Recovered/Resolved]

NARRATIVE: CASE EVENT DATE: 20150917
